FAERS Safety Report 18744694 (Version 1)
Quarter: 2021Q1

REPORT INFORMATION
  Report Type: Spontaneous
  Country: SE (occurrence: SE)
  Receive Date: 20210115
  Receipt Date: 20210115
  Transmission Date: 20210419
  Serious: Yes (Other)
  Sender: FDA-Public Use
  Company Number: SE-TEVA-2021-SE-1868390

PATIENT
  Age: 67 Year
  Sex: Female

DRUGS (1)
  1. STESOLID RECTAL CLYSMA [Suspect]
     Active Substance: DIAZEPAM
     Indication: MUSCLE SPASMS
     Dosage: THE USE IS ON DEMAND, DAILY DOSE 15?20MG
     Route: 054

REACTIONS (3)
  - Diarrhoea haemorrhagic [Not Recovered/Not Resolved]
  - Malaise [Not Recovered/Not Resolved]
  - Sensory loss [Not Recovered/Not Resolved]
